FAERS Safety Report 15256050 (Version 1)
Quarter: 2018Q3

REPORT INFORMATION
  Report Type: Spontaneous
  Country: US (occurrence: US)
  Receive Date: 20180808
  Receipt Date: 20180808
  Transmission Date: 20181010
  Serious: Yes (Other)
  Sender: FDA-Public Use
  Company Number: US-ROCHE-2153481

PATIENT
  Age: 9 Year
  Sex: Male
  Weight: 26.69 kg

DRUGS (9)
  1. NUTROPIN AQ [Suspect]
     Active Substance: SOMATROPIN
     Dosage: DAILY
     Route: 058
     Dates: start: 20180209, end: 20180704
  2. PEDIASURE [Concomitant]
     Active Substance: VITAMINS
     Route: 065
     Dates: start: 20150812
  3. POLYETHYLENE GLYCOL [Concomitant]
     Active Substance: POLYETHYLENE GLYCOLS
     Indication: CONSTIPATION
     Route: 065
     Dates: start: 20160816
  4. ARIPIPRAZOLE. [Concomitant]
     Active Substance: ARIPIPRAZOLE
     Dosage: 1 TAB DAILY
     Route: 048
     Dates: start: 20180507
  5. MUPIROCIN. [Concomitant]
     Active Substance: MUPIROCIN
     Route: 065
  6. ESCITALOPRAM OXALATE. [Concomitant]
     Active Substance: ESCITALOPRAM OXALATE
     Dosage: 1 TAB DAILY
     Route: 048
     Dates: start: 20180625
  7. SOLU?CORTEF [Concomitant]
     Active Substance: HYDROCORTISONE SODIUM SUCCINATE
     Route: 065
     Dates: start: 20160421
  8. NUTROPIN AQ [Suspect]
     Active Substance: SOMATROPIN
     Indication: PRODUCT USED FOR UNKNOWN INDICATION
     Dosage: 6 MONTH(S)
     Route: 065
  9. TRIAMCINOLONE ACETONIDE. [Concomitant]
     Active Substance: TRIAMCINOLONE ACETONIDE
     Route: 065

REACTIONS (2)
  - Papilloedema [Unknown]
  - Optic neuritis [Unknown]

NARRATIVE: CASE EVENT DATE: 20180614
